FAERS Safety Report 7187234-0 (Version None)
Quarter: 2010Q4

REPORT INFORMATION
  Report Type: 
  Country: None (occurrence: None)
  Receive Date: 20101222
  Receipt Date: 20101210
  Transmission Date: 20110411
  Serious: Yes (Hospitalization)
  Sender: FDA-Public Use
  Company Number: US-ELI_LILLY_AND_COMPANY-US201005002491

PATIENT
  Sex: Female

DRUGS (6)
  1. FORTEO [Suspect]
     Indication: OSTEOPOROSIS
     Dosage: 20 UG, DAILY (1/D)
     Dates: start: 20090401
  2. FORTEO [Suspect]
     Dosage: 20 UG, DAILY (1/D)
     Dates: end: 20100901
  3. NEXIUM [Concomitant]
     Indication: ABDOMINAL DISCOMFORT
  4. CALCIUM + VITAMIN D [Concomitant]
  5. MAGNESIUM [Concomitant]
  6. ANALGESICS [Concomitant]
     Indication: PAIN

REACTIONS (8)
  - DIARRHOEA [None]
  - GASTRIC DISORDER [None]
  - HIP FRACTURE [None]
  - MALAISE [None]
  - NAUSEA [None]
  - NEOPLASM SKIN [None]
  - PAIN [None]
  - SPINAL FRACTURE [None]
